FAERS Safety Report 23538640 (Version 1)
Quarter: 2024Q1

REPORT INFORMATION
  Report Type: Spontaneous
  Country: GB (occurrence: GB)
  Receive Date: 20240219
  Receipt Date: 20240219
  Transmission Date: 20240410
  Serious: Yes (Disabling)
  Sender: FDA-Public Use
  Company Number: GB-MHRA-MED-202402021551156130-HDWRK

PATIENT
  Age: 51 Year
  Sex: Female
  Weight: 84 kg

DRUGS (9)
  1. TOPIRAMATE [Suspect]
     Active Substance: TOPIRAMATE
     Indication: Migraine
     Dosage: 50 MILLIGRAM, TWO TIMES A DAY
     Route: 065
  2. TOPIRAMATE [Suspect]
     Active Substance: TOPIRAMATE
     Dosage: 100 MILLIGRAM, TWO TIMES A DAY
     Route: 065
     Dates: start: 20230402, end: 20240119
  3. AJOVY [Concomitant]
     Active Substance: FREMANEZUMAB-VFRM
     Indication: Migraine
     Dosage: UNK
     Route: 065
     Dates: start: 20231216
  4. ATORVASTATIN [Concomitant]
     Active Substance: ATORVASTATIN
     Indication: Blood cholesterol increased
     Dosage: UNK
     Route: 065
     Dates: start: 20150801
  5. ATORVASTATIN [Concomitant]
     Active Substance: ATORVASTATIN
     Indication: Hypercholesterolaemia
  6. CANDESARTAN [Concomitant]
     Active Substance: CANDESARTAN
     Indication: Hypertension
     Dosage: UNK
     Route: 065
     Dates: start: 20230601
  7. FUROSEMIDE [Concomitant]
     Active Substance: FUROSEMIDE
     Indication: Fluid retention
     Dosage: UNK
     Route: 065
     Dates: start: 20211001
  8. PREGABALIN [Concomitant]
     Active Substance: PREGABALIN
     Indication: Neuralgia
     Dosage: UNK
     Route: 065
     Dates: start: 20210401
  9. WARFARIN [Concomitant]
     Active Substance: WARFARIN
     Indication: Mitral valve replacement
     Dosage: UNK
     Route: 065
     Dates: start: 19880828

REACTIONS (4)
  - Aphasia [Recovered/Resolved with Sequelae]
  - Amnesia [Unknown]
  - Confusional state [Unknown]
  - Speech disorder [Unknown]

NARRATIVE: CASE EVENT DATE: 20230402
